FAERS Safety Report 15694070 (Version 3)
Quarter: 2018Q4

REPORT INFORMATION
  Report Type: Report from Study
  Country: CR (occurrence: CR)
  Receive Date: 20181206
  Receipt Date: 20181221
  Transmission Date: 20190205
  Serious: Yes (Hospitalization, Other)
  Sender: FDA-Public Use
  Company Number: PHHY2018CR157454

PATIENT
  Sex: Male

DRUGS (2)
  1. TASIGNA [Suspect]
     Active Substance: NILOTINIB
     Dosage: 2 DF, (200 MG EVERY 12 HOURS)
     Route: 065
  2. TASIGNA [Suspect]
     Active Substance: NILOTINIB
     Indication: PRODUCT USED FOR UNKNOWN INDICATION
     Dosage: 20 MG, UNK
     Route: 065

REACTIONS (18)
  - Visual impairment [Unknown]
  - Arthralgia [Unknown]
  - Thyroid disorder [Unknown]
  - Malaise [Unknown]
  - Gastrointestinal infection [Unknown]
  - Tooth loss [Unknown]
  - Pruritus [Unknown]
  - Pain [Not Recovered/Not Resolved]
  - Swelling [Unknown]
  - Pruritus generalised [Unknown]
  - Leukaemia [Not Recovered/Not Resolved]
  - Incorrect dose administered [Unknown]
  - Memory impairment [Recovering/Resolving]
  - Neoplasm malignant [Unknown]
  - Rash [Recovering/Resolving]
  - Hypoacusis [Unknown]
  - Tooth infection [Unknown]
  - Acne [Unknown]
